FAERS Safety Report 4263035-8 (Version None)
Quarter: 2004Q1

REPORT INFORMATION
  Report Type: 
  Country: None (occurrence: None)
  Receive Date: 20040102
  Receipt Date: 20040102
  Transmission Date: 20041129
  Serious: No
  Sender: FDA-Public Use
  Company Number: None

PATIENT

DRUGS (1)
  1. NIMBEX [Suspect]

REACTIONS (3)
  - DRUG EFFECT PROLONGED [None]
  - MEDICATION ERROR [None]
  - PARALYSIS [None]
